FAERS Safety Report 17269081 (Version 1)
Quarter: 2020Q1

REPORT INFORMATION
  Report Type: Spontaneous
  Country: US (occurrence: US)
  Receive Date: 20200114
  Receipt Date: 20200114
  Transmission Date: 20200409
  Serious: Yes (Hospitalization, Other)
  Sender: FDA-Public Use
  Company Number: None

PATIENT
  Age: 63 Year
  Sex: Female
  Weight: 53.1 kg

DRUGS (3)
  1. METHYLPREDNISOLONE TABLETS USP 4MG [Suspect]
     Active Substance: METHYLPREDNISOLONE
     Indication: PRODUCT USED FOR UNKNOWN INDICATION
     Dosage: ?          QUANTITY:21 TABLET(S);OTHER FREQUENCY:6 FIRST DAY;?
     Route: 048
     Dates: start: 20191106, end: 20191106
  2. TUMS [Concomitant]
     Active Substance: CALCIUM CARBONATE
  3. PEPTO-BISMOL [Concomitant]
     Active Substance: BISMUTH SUBSALICYLATE

REACTIONS (7)
  - Gastric ulcer [None]
  - Gastrointestinal disorder [None]
  - Feeding disorder [None]
  - Impaired work ability [None]
  - Thinking abnormal [None]
  - Vaginal haemorrhage [None]
  - Rectal haemorrhage [None]

NARRATIVE: CASE EVENT DATE: 20191106
